FAERS Safety Report 16473849 (Version 1)
Quarter: 2019Q2

REPORT INFORMATION
  Report Type: Spontaneous
  Country: GB (occurrence: GB)
  Receive Date: 20190625
  Receipt Date: 20190625
  Transmission Date: 20190711
  Serious: Yes (Death)
  Sender: FDA-Public Use
  Company Number: GB-ASTRAZENECA-2019SE79470

PATIENT
  Age: 65 Year
  Sex: Female
  Weight: 50 kg

DRUGS (8)
  1. ADALAT [Concomitant]
     Active Substance: NIFEDIPINE
     Route: 048
  2. BENDROFLUAZIDE [Concomitant]
     Active Substance: BENDROFLUMETHIAZIDE
     Indication: HYPERTENSION
     Dosage: 25 MG
     Route: 048
  3. FOSTAIR [Concomitant]
     Active Substance: BECLOMETHASONE\FORMOTEROL
     Indication: CHRONIC OBSTRUCTIVE PULMONARY DISEASE
     Dosage: TWICE A DAY
  4. IMFINZI [Suspect]
     Active Substance: DURVALUMAB
     Indication: NON-SMALL CELL LUNG CANCER STAGE III
     Route: 042
     Dates: start: 20180824, end: 20190114
  5. BRICANYL [Concomitant]
     Active Substance: TERBUTALINE SULFATE
     Indication: CHRONIC OBSTRUCTIVE PULMONARY DISEASE
     Dosage: 2 PUFSS PM
  6. SPIRIVA [Concomitant]
     Active Substance: TIOTROPIUM BROMIDE MONOHYDRATE
     Indication: CHRONIC OBSTRUCTIVE PULMONARY DISEASE
     Dosage: 2 PUFFS INHALER
  7. CISPLATIN. [Concomitant]
     Active Substance: CISPLATIN
  8. NAVELBINE [Concomitant]
     Active Substance: VINORELBINE TARTRATE
     Route: 048

REACTIONS (7)
  - Confusional state [Unknown]
  - Ataxia [Unknown]
  - Blood thyroid stimulating hormone increased [Unknown]
  - Metastases to central nervous system [Fatal]
  - Orthostatic hypotension [Unknown]
  - Malignant neoplasm progression [Fatal]
  - Hypertension [Unknown]

NARRATIVE: CASE EVENT DATE: 201901
